FAERS Safety Report 4425292-4 (Version None)
Quarter: 2004Q3

REPORT INFORMATION
  Report Type: 
  Country: None (occurrence: None)
  Receive Date: 20040812
  Receipt Date: 20040812
  Transmission Date: 20050211
  Serious: No
  Sender: FDA-Public Use
  Company Number: None

PATIENT
  Age: 71 Year
  Sex: Male
  Weight: 95.2554 kg

DRUGS (8)
  1. GATIFLOXACIN [Suspect]
     Indication: PNEUMONIA
     Dosage: 400 MG ORAL
     Route: 048
     Dates: start: 20040315, end: 20040318
  2. GATIFLOXACIN [Suspect]
     Indication: SEPSIS
     Dosage: 400 MG ORAL
     Route: 048
     Dates: start: 20040315, end: 20040318
  3. BUMEX [Concomitant]
  4. CARVEDILOL [Concomitant]
  5. DILTIAZEM [Concomitant]
  6. GLYBURIDE [Concomitant]
  7. INSULIN [Concomitant]
  8. RANITIDINE [Concomitant]

REACTIONS (1)
  - HYPOGLYCAEMIA [None]
